FAERS Safety Report 11552660 (Version 1)
Quarter: 2015Q3

REPORT INFORMATION
  Report Type: Spontaneous
  Country: NO (occurrence: NO)
  Receive Date: 20150925
  Receipt Date: 20150925
  Transmission Date: 20151125
  Serious: Yes (Congenital Anomaly)
  Sender: FDA-Public Use
  Company Number: NO-ROCHE-1633845

PATIENT
  Age: 0 Day
  Sex: Female

DRUGS (1)
  1. PEGASYS [Suspect]
     Active Substance: PEGINTERFERON ALFA-2A
     Indication: PRODUCT USED FOR UNKNOWN INDICATION
     Dosage: PEGASYS WAS USED BY THE GIRLS FATHER
     Route: 050
     Dates: start: 20131104, end: 20150825

REACTIONS (2)
  - Trisomy 21 [Not Recovered/Not Resolved]
  - Exposure via father [Unknown]

NARRATIVE: CASE EVENT DATE: 201503
